FAERS Safety Report 4931393-4 (Version None)
Quarter: 2006Q1

REPORT INFORMATION
  Report Type: 
  Country: None (occurrence: None)
  Receive Date: 20060303
  Receipt Date: 20060228
  Transmission Date: 20060701
  Serious: Yes (Life-Threatening)
  Sender: FDA-Public Use
  Company Number: PHRM2006FR00905

PATIENT
  Age: 73 Year
  Sex: Male

DRUGS (5)
  1. ARANESP [Concomitant]
     Indication: ANAEMIA
     Dosage: 300 UG/ML, QMO
     Route: 058
  2. PREVISCAN [Concomitant]
     Indication: PORTAL VEIN THROMBOSIS
     Dosage: 10 MG DAILY
     Route: 048
  3. UN-ALFA [Concomitant]
     Indication: VITAMIN D DEFICIENCY
     Dosage: 0.50 A?G PER DAY
     Route: 048
  4. THALIDOMIDE [Concomitant]
     Indication: CONGENITAL HYPOTHYROIDISM
     Dosage: 100 MG DAILY
     Route: 048
  5. ZOMETA [Suspect]
     Indication: MULTIPLE MYELOMA
     Dosage: 4 MG, QMO
     Route: 042
     Dates: start: 20011001

REACTIONS (11)
  - ANAEMIA [None]
  - ARTERIOVENOUS FISTULA [None]
  - BLOOD CALCIUM DECREASED [None]
  - BLOOD CREATININE INCREASED [None]
  - BLOOD PHOSPHORUS DECREASED [None]
  - HAEMOGLOBIN DECREASED [None]
  - LEUKOPENIA [None]
  - RED BLOOD CELL SEDIMENTATION RATE INCREASED [None]
  - RENAL FAILURE ACUTE [None]
  - RENAL TUBULAR NECROSIS [None]
  - THROMBOCYTOPENIA [None]
